FAERS Safety Report 4985118-7 (Version None)
Quarter: 2006Q1

REPORT INFORMATION
  Report Type: 
  Country: None (occurrence: None)
  Receive Date: 20060309
  Receipt Date: 20050907
  Transmission Date: 20060701
  Serious: Yes (Other)
  Sender: FDA-Public Use
  Company Number: 417284

PATIENT

DRUGS (5)
  1. ACCUTANE [Suspect]
     Indication: DRUG USE FOR UNKNOWN INDICATION
     Dates: start: 19860615, end: 19860615
  2. UNSPECIFIED DRUG (GENERIC UNKNOWN) [Concomitant]
  3. FOLIC ACID [Concomitant]
  4. PRENATAL VITAMINS (MINERALS NOS/MULTIVITAMIN NOS) [Concomitant]
  5. ASACOL [Concomitant]

REACTIONS (2)
  - NO ADVERSE EFFECT [None]
  - PREGNANCY [None]
